FAERS Safety Report 25453729 (Version 1)
Quarter: 2025Q2

REPORT INFORMATION
  Report Type: Spontaneous
  Country: ES (occurrence: ES)
  Receive Date: 20250619
  Receipt Date: 20250619
  Transmission Date: 20250717
  Serious: Yes (Other)
  Sender: CELLTRION
  Company Number: ES-ROCHE-10000184956

PATIENT

DRUGS (4)
  1. RITUXIMAB [Suspect]
     Active Substance: RITUXIMAB
     Indication: Chronic lymphocytic leukaemia
     Route: 065
  2. IDELALISIB [Suspect]
     Active Substance: IDELALISIB
     Indication: Chronic lymphocytic leukaemia
     Route: 065
  3. IBRUTINIB [Concomitant]
     Active Substance: IBRUTINIB
  4. VENETOCLAX [Concomitant]
     Active Substance: VENETOCLAX

REACTIONS (2)
  - Hypertransaminasaemia [Unknown]
  - Stevens-Johnson syndrome [Unknown]
